FAERS Safety Report 7060455-3 (Version None)
Quarter: 2010Q4

REPORT INFORMATION
  Report Type: 
  Country: None (occurrence: None)
  Receive Date: 20101025
  Receipt Date: 20101020
  Transmission Date: 20110411
  Serious: Yes (Other)
  Sender: FDA-Public Use
  Company Number: JP-PFIZER INC-2010132879

PATIENT
  Age: 63 Year
  Sex: Male

DRUGS (3)
  1. CEFOPERAZONE SODIUM, SULBACTAM SODIUM [Suspect]
     Indication: INFECTION
  2. CLINDAMYCIN PHOSPHATE [Suspect]
     Indication: INFECTION
  3. IMIPENEM AND CILASTATIN SODIUM [Suspect]
     Indication: INFECTION

REACTIONS (4)
  - ABSCESS [None]
  - CEREBROVASCULAR DISORDER [None]
  - COAGULOPATHY [None]
  - SUBDURAL HAEMATOMA [None]
